FAERS Safety Report 6671694-5 (Version None)
Quarter: 2010Q2

REPORT INFORMATION
  Report Type: 
  Country: None (occurrence: None)
  Receive Date: 20100407
  Receipt Date: 20100323
  Transmission Date: 20101027
  Serious: Yes (Hospitalization)
  Sender: FDA-Public Use
  Company Number: PHHO2010US05129

PATIENT
  Age: 65 Year
  Sex: Male
  Weight: 43.084 kg

DRUGS (16)
  1. DIOVAN [Suspect]
     Dosage: 80 MG, ONCE/SINGLE
     Route: 048
     Dates: start: 20090602, end: 20090602
  2. DIOVAN [Suspect]
     Dosage: 40 MG, BID
     Route: 048
     Dates: start: 20090604
  3. TOPROL-XL [Suspect]
     Indication: THROMBOSIS PROPHYLAXIS
     Dosage: 75 MG, QD
     Route: 048
     Dates: start: 20090303, end: 20090602
  4. TOPROL-XL [Suspect]
     Dosage: 50 MG, QD
     Route: 048
     Dates: start: 20090604
  5. CEFAZOLIN SODIUM [Concomitant]
  6. ADENOSINE [Concomitant]
  7. ASPIRIN [Concomitant]
  8. FENTANYL-100 [Concomitant]
  9. NITROGLYCERIN [Concomitant]
  10. VERSED [Concomitant]
  11. ATORVASTATIN CALCIUM [Concomitant]
  12. CLOPIDOGREL [Concomitant]
  13. NEXIUM [Concomitant]
     Dosage: UNK
  14. ANCEF [Concomitant]
  15. LORTAB [Concomitant]
  16. ARTIFICIAL TEARS [Concomitant]

REACTIONS (3)
  - ASTHENIA [None]
  - HYPOTENSION [None]
  - SYNCOPE [None]
